FAERS Safety Report 7685836-6 (Version None)
Quarter: 2011Q3

REPORT INFORMATION
  Report Type: 
  Country: None (occurrence: None)
  Receive Date: 20110816
  Receipt Date: 20110809
  Transmission Date: 20111222
  Serious: Yes (Death)
  Sender: FDA-Public Use
  Company Number: FR-ROCHE-795894

PATIENT
  Sex: Male

DRUGS (8)
  1. CLONAZEPAM [Suspect]
     Dosage: 2.5 MG/ML
     Route: 048
  2. LOPRESSOR [Concomitant]
  3. TRAMADOL HCL [Suspect]
     Route: 048
  4. EFFEXOR [Suspect]
     Route: 048
  5. NOZINAN [Suspect]
     Route: 048
  6. IMOVANE [Suspect]
     Route: 048
  7. ACETAMINOPHEN [Suspect]
     Route: 048
  8. FERROUS SULFATE TAB [Concomitant]

REACTIONS (1)
  - CARDIO-RESPIRATORY ARREST [None]
